FAERS Safety Report 10017281 (Version 1)
Quarter: 2014Q1

REPORT INFORMATION
  Report Type: Report from Study
  Country: BR (occurrence: BR)
  Receive Date: 20140318
  Receipt Date: 20140318
  Transmission Date: 20141002
  Serious: Yes (Other)
  Sender: FDA-Public Use
  Company Number: PHHY2014BR031811

PATIENT
  Sex: Male
  Weight: 62 kg

DRUGS (1)
  1. DIOVAN [Suspect]
     Indication: BLOOD PRESSURE INADEQUATELY CONTROLLED
     Dosage: 2 DF, (160 MG) DAILY IN THE MORNING
     Route: 048

REACTIONS (1)
  - Amyotrophic lateral sclerosis [Not Recovered/Not Resolved]
